FAERS Safety Report 4558780-0 (Version None)
Quarter: 2005Q1

REPORT INFORMATION
  Report Type: 
  Country: None (occurrence: None)
  Receive Date: 20050121
  Receipt Date: 20050112
  Transmission Date: 20050727
  Serious: Yes (Other)
  Sender: FDA-Public Use
  Company Number: BR-GLAXOSMITHKLINE-A0541344A

PATIENT
  Age: 75 Year
  Sex: Female
  Weight: 64 kg

DRUGS (3)
  1. LAMICTAL [Suspect]
     Indication: DRUG USE FOR UNKNOWN INDICATION
     Route: 048
     Dates: start: 20050106
  2. NEURONTIN [Concomitant]
     Dosage: 1200MG PER DAY
  3. FRISIUM [Concomitant]
     Dosage: 15MG PER DAY

REACTIONS (3)
  - AFFECTIVE DISORDER [None]
  - IRRITABILITY [None]
  - NEUROPATHY [None]
